FAERS Safety Report 4683281-9 (Version None)
Quarter: 2005Q2

REPORT INFORMATION
  Report Type: 
  Country: None (occurrence: None)
  Receive Date: 20050602
  Receipt Date: 20050309
  Transmission Date: 20051028
  Serious: No
  Sender: FDA-Public Use
  Company Number: USA050393115

PATIENT
  Age: 39 Year
  Sex: Male

DRUGS (3)
  1. CYMBALTA [Suspect]
     Indication: PAIN
     Dosage: 60 MG DAY
  2. BP MEDICINE [Concomitant]
  3. PAIN MEDICINES [Concomitant]

REACTIONS (1)
  - BLOOD PRESSURE INCREASED [None]
